FAERS Safety Report 4808660-8 (Version None)
Quarter: 2005Q4

REPORT INFORMATION
  Report Type: 
  Country: None (occurrence: None)
  Receive Date: 20051021
  Receipt Date: 20011011
  Transmission Date: 20060501
  Serious: No
  Sender: FDA-Public Use
  Company Number: DE_011007025

PATIENT
  Age: 31 Year
  Sex: Female

DRUGS (2)
  1. ZYPREXA [Suspect]
     Indication: AUTISM SPECTRUM DISORDER
     Dosage: 5 MG/DAY
     Dates: start: 20010501
  2. ZYPREXA [Suspect]
     Indication: PSYCHOTIC DISORDER
     Dosage: 5 MG/DAY
     Dates: start: 20010501

REACTIONS (2)
  - PLATELET COUNT DECREASED [None]
  - RED BLOOD CELL COUNT DECREASED [None]
